FAERS Safety Report 11474777 (Version 1)
Quarter: 2015Q3

REPORT INFORMATION
  Report Type: Spontaneous
  Country: US (occurrence: None)
  Receive Date: 20150902
  Receipt Date: 20150902
  Transmission Date: 20151125
  Serious: Yes (Hospitalization)
  Sender: FDA-Public Use
  Company Number: A-US2014-108824

PATIENT
  Age: 18 Year
  Sex: Female

DRUGS (4)
  1. REVATIO (SILDENAFIL CITRATE) [Concomitant]
  2. TRACLEER [Concomitant]
     Active Substance: BOSENTAN
  3. VELETRI [Suspect]
     Active Substance: EPOPROSTENOL
     Indication: COR PULMONALE CHRONIC
     Dosage: PER MIN
     Route: 042
     Dates: start: 20120912
  4. WARFARIN (WARFARIN) [Concomitant]
     Active Substance: WARFARIN

REACTIONS (1)
  - Thrombosis in device [None]

NARRATIVE: CASE EVENT DATE: 20141120
